FAERS Safety Report 21727398 (Version 1)
Quarter: 2022Q4

REPORT INFORMATION
  Report Type: Spontaneous
  Country: US (occurrence: None)
  Receive Date: 20221213
  Receipt Date: 20221213
  Transmission Date: 20230113
  Serious: Yes (Hospitalization)
  Sender: FDA-Public Use
  Company Number: None

PATIENT
  Age: 53 Year
  Sex: Male
  Weight: 135 kg

DRUGS (7)
  1. MOUNJARO [Suspect]
     Active Substance: TIRZEPATIDE
     Indication: Type 2 diabetes mellitus
     Dosage: OTHER QUANTITY : 4 INJECTION(S);?OTHER FREQUENCY : WEEKLY;?
     Route: 058
     Dates: start: 20221030, end: 20221116
  2. HYZZAR [Concomitant]
  3. VERAPAMIL HYDROCHLORIDE [Concomitant]
     Active Substance: VERAPAMIL HYDROCHLORIDE
  4. OXYBUTYNIN [Concomitant]
     Active Substance: OXYBUTYNIN
  5. POTASSIUM CHLORIDE [Concomitant]
     Active Substance: POTASSIUM CHLORIDE
  6. TAMSULOSIN [Concomitant]
  7. MOUNJARO [Concomitant]

REACTIONS (13)
  - Nausea [None]
  - Eructation [None]
  - Abdominal distension [None]
  - Diarrhoea [None]
  - Fatigue [None]
  - Flushing [None]
  - Pyrexia [None]
  - Loss of consciousness [None]
  - Dehydration [None]
  - Orthostatic hypotension [None]
  - Electrolyte imbalance [None]
  - Acute kidney injury [None]
  - Lymphadenitis [None]

NARRATIVE: CASE EVENT DATE: 20221120
